FAERS Safety Report 9253746 (Version 1)
Quarter: 2013Q2

REPORT INFORMATION
  Report Type: Spontaneous
  Country: CA (occurrence: CA)
  Receive Date: 20130425
  Receipt Date: 20130425
  Transmission Date: 20140414
  Serious: Yes (Life-Threatening, Hospitalization, Disabling)
  Sender: FDA-Public Use
  Company Number: CA-BAYER-2013-048886

PATIENT
  Sex: Female
  Weight: 81.64 kg

DRUGS (3)
  1. MIRENA [Suspect]
     Dosage: 20 MCG/24HR, CONT
     Route: 015
  2. CIPRALEX [Suspect]
     Dosage: 20MG 1 TABLET, QD
     Route: 048
  3. PARIET [Concomitant]

REACTIONS (1)
  - Pulmonary embolism [Unknown]
